FAERS Safety Report 8160167-9 (Version None)
Quarter: 2012Q1

REPORT INFORMATION
  Report Type: 
  Country: None (occurrence: None)
  Receive Date: 20120223
  Receipt Date: 20120213
  Transmission Date: 20120608
  Serious: Yes (Hospitalization, Other)
  Sender: FDA-Public Use
  Company Number: US-BAYER-2011-052520

PATIENT
  Age: 19 Year
  Sex: Female
  Weight: 82 kg

DRUGS (14)
  1. DOMPERIDONE [Concomitant]
     Indication: IMPAIRED GASTRIC EMPTYING
     Dosage: 20 MG, BID
  2. MICROGESTIN 1.5/30 [Concomitant]
     Dosage: UNK
     Dates: start: 20091014, end: 20091029
  3. DROSPIRENONE AND ETHINYL ESTRADIOL [Suspect]
     Indication: CYST
  4. SYMBICORT [Concomitant]
     Dosage: UNK UNK, PRN
     Dates: start: 20050101
  5. DROSPIRENONE AND ETHINYL ESTRADIOL [Suspect]
     Indication: CONTRACEPTION
     Dosage: UNK
     Dates: start: 20050101, end: 20090101
  6. ALBUTEROL INHALER [Concomitant]
     Dosage: UNK UNK, PRN
     Dates: start: 20020101
  7. IBUPROFEN [Concomitant]
  8. ADVAIR DISKUS 100/50 [Concomitant]
     Dosage: UNK UNK, PRN
     Dates: start: 20050101
  9. YASMIN [Suspect]
     Dosage: UNK
     Dates: start: 20050101, end: 20090101
  10. COMPAZINE [Concomitant]
  11. CEPHALEXIN [Concomitant]
  12. PRILOSEC [Concomitant]
     Dosage: BID
  13. BENTYL [Concomitant]
     Dosage: 20 MG, QD
  14. FLAGYL [Concomitant]
     Dosage: 50 MG, BID

REACTIONS (6)
  - GALLBLADDER DISORDER [None]
  - CHOLECYSTITIS CHRONIC [None]
  - NEPHROLITHIASIS [None]
  - ABDOMINAL PAIN UPPER [None]
  - ABDOMINAL PAIN [None]
  - DIARRHOEA [None]
